FAERS Safety Report 10349199 (Version 3)
Quarter: 2022Q2

REPORT INFORMATION
  Report Type: Other
  Country: CA (occurrence: None)
  Receive Date: 20140730
  Receipt Date: 20220407
  Transmission Date: 20220720
  Serious: Yes (Other)
  Sender: FDA-Public Use
  Company Number: CA-ROCHE-1438280

PATIENT
  Age: 32 Year
  Sex: Female

DRUGS (10)
  1. DIAZEPAM [Suspect]
     Active Substance: DIAZEPAM
     Indication: Product used for unknown indication
     Route: 042
  2. FORANE [Suspect]
     Active Substance: ISOFLURANE
     Indication: Product used for unknown indication
     Dosage: THERAPY DURATION: 45 HOURS
     Route: 045
  3. LIDOCAINE [Suspect]
     Active Substance: LIDOCAINE
     Indication: Product used for unknown indication
     Dosage: THERAPY DURATION: 3 HOURS
     Route: 061
  4. LORAZEPAM [Suspect]
     Active Substance: LORAZEPAM
     Indication: Product used for unknown indication
     Route: 040
  5. PARALDEHYDE [Suspect]
     Active Substance: PARALDEHYDE
     Indication: Product used for unknown indication
     Dosage: LIQUID INTRAMUSCULAR
     Route: 065
  6. PHENOBARBITAL [Suspect]
     Active Substance: PHENOBARBITAL
     Indication: Product used for unknown indication
     Route: 042
  7. PHENOBARBITAL [Suspect]
     Active Substance: PHENOBARBITAL
     Route: 042
  8. PHENYTOIN SODIUM [Suspect]
     Active Substance: PHENYTOIN SODIUM
     Indication: Product used for unknown indication
     Route: 042
  9. VALPROIC ACID [Suspect]
     Active Substance: VALPROIC ACID
     Indication: Product used for unknown indication
     Route: 065
  10. DOPAMINE HYDROCHLORIDE [Concomitant]
     Active Substance: DOPAMINE HYDROCHLORIDE

REACTIONS (3)
  - Drug ineffective [Unknown]
  - Hypotension [Unknown]
  - Status epilepticus [Unknown]
